FAERS Safety Report 7800932-8 (Version None)
Quarter: 2011Q4

REPORT INFORMATION
  Report Type: 
  Country: None (occurrence: None)
  Receive Date: 20111006
  Receipt Date: 20110929
  Transmission Date: 20120403
  Serious: Yes (Other)
  Sender: FDA-Public Use
  Company Number: CN-BAYER-2011-092001

PATIENT
  Sex: Female

DRUGS (1)
  1. GLUCOBAY [Suspect]
     Dosage: 50 MG, TID
     Route: 048
     Dates: start: 20100101

REACTIONS (1)
  - GASTRITIS ATROPHIC [None]
